FAERS Safety Report 5174433-2 (Version None)
Quarter: 2006Q4

REPORT INFORMATION
  Report Type: 
  Country: None (occurrence: None)
  Receive Date: 20061206
  Receipt Date: 20061124
  Transmission Date: 20070319
  Serious: Yes (Death)
  Sender: FDA-Public Use
  Company Number: 2006-150931-NL

PATIENT
  Age: 34 Year
  Sex: Female

DRUGS (5)
  1. ROCURONIUM BROMIDE [Suspect]
     Indication: MUSCLE RELAXANT THERAPY
  2. LIDOCAINE [Suspect]
     Indication: LOCAL ANAESTHESIA
  3. ADRENALINE [Concomitant]
  4. PROPOFOL [Concomitant]
  5. FENTANYL [Concomitant]

REACTIONS (3)
  - ATRIAL FIBRILLATION [None]
  - DRUG TOXICITY [None]
  - VENTRICULAR FIBRILLATION [None]
